FAERS Safety Report 6259426-6 (Version None)
Quarter: 2009Q3

REPORT INFORMATION
  Report Type: 
  Country: None (occurrence: None)
  Receive Date: 20090708
  Receipt Date: 20070406
  Transmission Date: 20100115
  Serious: Yes (Other)
  Sender: FDA-Public Use
  Company Number: US-ASTRAZENECA-2007UW04074

PATIENT
  Age: 645 Month
  Sex: Female
  Weight: 90.7 kg

DRUGS (27)
  1. SEROQUEL [Suspect]
     Indication: DEPRESSION
     Dosage: 25-600MG
     Route: 048
     Dates: start: 20020710
  2. SEROQUEL [Suspect]
     Indication: INSOMNIA
     Dosage: 25-600MG
     Route: 048
     Dates: start: 20020710
  3. SEROQUEL [Suspect]
     Route: 048
     Dates: start: 20020101, end: 20061001
  4. SEROQUEL [Suspect]
     Route: 048
     Dates: start: 20020101, end: 20061001
  5. CYMBALTA [Concomitant]
  6. LEXAPRO [Concomitant]
  7. DESYREL [Concomitant]
  8. DARVOCET-N 100 [Concomitant]
     Indication: PAIN
     Dosage: T.I.D.AS REQUIRED
     Route: 048
  9. SYNTHROID [Concomitant]
     Dosage: 100 UG DISPENSED
  10. BENADRYL [Concomitant]
     Dosage: AS REQUIRED
  11. AMBIEN [Concomitant]
     Dosage: 5-10 MG DISPENSED
  12. AMBIEN [Concomitant]
     Dosage: CR 12.5 MG DISPENSED
  13. SONATA [Concomitant]
     Dosage: 5-10 MG
  14. LUNESTA [Concomitant]
     Dosage: 2 MG DISPENSED
  15. NORVASC [Concomitant]
     Indication: HYPERTENSION
     Dosage: 5-10 MG DISPENSED
  16. EFFEXOR XR [Concomitant]
     Dosage: 75-150 MG DISPENSED
  17. SKELAXIN [Concomitant]
     Dosage: 400 MG DISPENSED
  18. ULTRACET [Concomitant]
  19. NEXIUM [Concomitant]
     Dosage: 40 MG DISPENSED
  20. REMERON [Concomitant]
     Dosage: 30 MG DISPENSED
  21. CYCLOBENZAPRINE [Concomitant]
     Dosage: 100 MG DISPENSED
  22. ROBAXIN [Concomitant]
     Dosage: 500 MG DISPENSED
  23. TRAZODONE HCL [Concomitant]
     Dosage: 50-100 MG DISPENSED
  24. ALBUTEROL [Concomitant]
     Dosage: 190 UG DISPENSED
     Route: 045
  25. ARTHROTEC [Concomitant]
     Dosage: 75 MG DISPENSED
  26. MEDROL [Concomitant]
     Dosage: 4 MG DISPENSED
  27. ACETAMINOPHEN W/ CODEINE TAB [Concomitant]

REACTIONS (2)
  - GLUCOSE TOLERANCE IMPAIRED [None]
  - TYPE 2 DIABETES MELLITUS [None]
